FAERS Safety Report 7768172-9 (Version None)
Quarter: 2011Q3

REPORT INFORMATION
  Report Type: 
  Country: None (occurrence: None)
  Receive Date: 20110922
  Receipt Date: 20110922
  Transmission Date: 20111222
  Serious: Yes (Other)
  Sender: FDA-Public Use
  Company Number: None

PATIENT
  Age: 59 Year
  Sex: Female
  Weight: 43.091 kg

DRUGS (1)
  1. FORTEO [Suspect]
     Indication: OSTEOPOROSIS
     Dosage: 20 MCG
     Route: 058
     Dates: start: 20091201, end: 20100515

REACTIONS (5)
  - GASTRITIS [None]
  - DUODENITIS [None]
  - GASTROINTESTINAL MOTILITY DISORDER [None]
  - IMPAIRED GASTRIC EMPTYING [None]
  - GASTROINTESTINAL DISORDER [None]
